FAERS Safety Report 6020354-2 (Version None)
Quarter: 2008Q4

REPORT INFORMATION
  Report Type: 
  Country: None (occurrence: None)
  Receive Date: 20081226
  Receipt Date: 20081219
  Transmission Date: 20090506
  Serious: Yes (Death)
  Sender: FDA-Public Use
  Company Number: ES-BAYER-200833280GPV

PATIENT
  Age: 91 Year
  Sex: Female

DRUGS (3)
  1. ASPIRIN [Suspect]
     Indication: DRUG USE FOR UNKNOWN INDICATION
     Dosage: AS USED: 500 MG
     Route: 048
     Dates: start: 20080626, end: 20080628
  2. ENALAPRIL MALEATE [Interacting]
     Indication: CARDIAC FAILURE
     Route: 048
     Dates: start: 20080501, end: 20080628
  3. OMEPRAZOLE [Concomitant]
     Indication: DRUG USE FOR UNKNOWN INDICATION
     Route: 048

REACTIONS (2)
  - CARDIAC FAILURE CHRONIC [None]
  - RENAL FAILURE ACUTE [None]
